FAERS Safety Report 11174523 (Version 1)
Quarter: 2015Q2

REPORT INFORMATION
  Report Type: Spontaneous
  Country: CO (occurrence: None)
  Receive Date: 20150605
  Receipt Date: 20150605
  Transmission Date: 20150821
  Serious: Yes (Death, Other)
  Sender: FDA-Public Use
  Company Number: CO2015GSK076341

PATIENT
  Age: 47 Year
  Sex: Male

DRUGS (3)
  1. KALETRA (LOPINAVIR RITONAVIR) [Concomitant]
  2. CELSENTRI (MARAVIROC) FILM-COATED TABLET [Suspect]
     Active Substance: MARAVIROC
     Indication: SALVAGE THERAPY
     Route: 048
  3. ETRAVIRINE [Suspect]
     Active Substance: ETRAVIRINE
     Indication: SALVAGE THERAPY

REACTIONS (1)
  - Bacteraemia [None]
